FAERS Safety Report 15740728 (Version 3)
Quarter: 2023Q4

REPORT INFORMATION
  Report Type: Spontaneous
  Country: GB (occurrence: GB)
  Receive Date: 20181219
  Receipt Date: 20231016
  Transmission Date: 20240110
  Serious: Yes (Death, Other)
  Sender: FDA-Public Use
  Company Number: GB-PFIZER INC-2008AP04958

PATIENT
  Age: 22 Year
  Sex: Female

DRUGS (14)
  1. MEROPENEM [Suspect]
     Active Substance: MEROPENEM
     Indication: Neutropenic sepsis
     Dosage: 2 G, 1X/DAY
     Route: 042
     Dates: start: 20080529, end: 20080618
  2. CYCLOSPORINE [Suspect]
     Active Substance: CYCLOSPORINE
     Indication: Aplastic anaemia
     Dosage: UNK
     Dates: start: 200805
  3. CUBICIN [Suspect]
     Active Substance: DAPTOMYCIN
     Indication: Enterococcal infection
     Dosage: 350 MG, ALTERNATE DAY
     Route: 042
     Dates: start: 20080609, end: 20080618
  4. CUBICIN [Suspect]
     Active Substance: DAPTOMYCIN
     Indication: Enterococcal sepsis
  5. DAPTOMYCIN [Suspect]
     Active Substance: DAPTOMYCIN
     Indication: Aplastic anaemia
     Dosage: UNK
  6. DAPTOMYCIN [Suspect]
     Active Substance: DAPTOMYCIN
     Indication: Enterococcal infection
  7. DAPTOMYCIN [Suspect]
     Active Substance: DAPTOMYCIN
     Indication: Fungal infection
  8. DAPTOMYCIN [Suspect]
     Active Substance: DAPTOMYCIN
     Indication: Haemorrhage
  9. DAPTOMYCIN [Suspect]
     Active Substance: DAPTOMYCIN
     Indication: Neutropenic sepsis
  10. CASPOFUNGIN [Concomitant]
     Active Substance: CASPOFUNGIN
     Indication: Fungal infection
     Dosage: 35 MG, DAILY
     Route: 042
     Dates: start: 200805
  11. TRANEXAMIC ACID [Concomitant]
     Active Substance: TRANEXAMIC ACID
     Indication: Haemorrhage
     Dosage: 1 G, 3X/DAY
     Route: 042
     Dates: start: 20080602, end: 20080618
  12. THIOPENTAL [Concomitant]
     Active Substance: THIOPENTAL
     Dosage: UNK
  13. LEVETIRACETAM [Concomitant]
     Active Substance: LEVETIRACETAM
     Dosage: UNK
  14. CANCIDAS [Concomitant]
     Active Substance: CASPOFUNGIN ACETATE
     Dosage: 35 MG, UNK
     Route: 042
     Dates: start: 200805

REACTIONS (6)
  - Haemorrhage intracranial [Fatal]
  - Brain oedema [Fatal]
  - Seizure [Unknown]
  - Enterococcal sepsis [Unknown]
  - Fungal infection [Unknown]
  - Nosocomial infection [Unknown]

NARRATIVE: CASE EVENT DATE: 20080616
